FAERS Safety Report 8283795-9 (Version None)
Quarter: 2012Q2

REPORT INFORMATION
  Report Type: 
  Country: None (occurrence: None)
  Receive Date: 20120413
  Receipt Date: 20110520
  Transmission Date: 20120825
  Serious: No
  Sender: FDA-Public Use
  Company Number: US-ASTRAZENECA-2005UW19439

PATIENT
  Age: 784 Month
  Sex: Female
  Weight: 72.6 kg

DRUGS (5)
  1. PRAVACHOL [Concomitant]
  2. EVISTA [Concomitant]
  3. CARAFATE [Concomitant]
  4. PRILOSEC [Suspect]
     Indication: GASTROOESOPHAGEAL REFLUX DISEASE
     Route: 048
     Dates: start: 20051101, end: 20051101
  5. NEXIUM [Suspect]
     Indication: GASTROOESOPHAGEAL REFLUX DISEASE
     Route: 048

REACTIONS (4)
  - GASTRIC POLYPS [None]
  - ABDOMINAL PAIN UPPER [None]
  - ENDOSCOPY [None]
  - NAUSEA [None]
